FAERS Safety Report 16341729 (Version 1)
Quarter: 2019Q2

REPORT INFORMATION
  Report Type: Spontaneous
  Country: US (occurrence: US)
  Receive Date: 20190416
  Receipt Date: 20190416
  Transmission Date: 20190711
  Serious: No
  Sender: FDA-Public Use
  Company Number: None

PATIENT
  Age: 26 Year
  Sex: Female

DRUGS (1)
  1. REBIF REBIDOSE [Suspect]
     Active Substance: INTERFERON BETA-1A
     Dosage: 44MCG THREE TIMES PER  OTHER SUBCUTANEOUS
     Route: 058
     Dates: start: 20180101

REACTIONS (2)
  - Sleep disorder [None]
  - Injection site pain [None]

NARRATIVE: CASE EVENT DATE: 20190416
